FAERS Safety Report 9213764 (Version 2)
Quarter: 2013Q2

REPORT INFORMATION
  Report Type: Spontaneous
  Country: US (occurrence: US)
  Receive Date: 20130405
  Receipt Date: 20130520
  Transmission Date: 20140414
  Serious: Yes (Hospitalization)
  Sender: FDA-Public Use
  Company Number: US-NOVOPROD-374748

PATIENT
  Age: 73 Year
  Sex: Female
  Weight: 85.26 kg

DRUGS (1)
  1. VICTOZA [Suspect]
     Indication: TYPE 2 DIABETES MELLITUS
     Dosage: 1.8 MG QD
     Route: 058
     Dates: start: 20120327

REACTIONS (2)
  - Dehydration [Recovering/Resolving]
  - Abdominal pain [Recovering/Resolving]
